FAERS Safety Report 8676265 (Version 5)
Quarter: 2013Q2

REPORT INFORMATION
  Report Type: Spontaneous
  Country: US (occurrence: US)
  Receive Date: 20120720
  Receipt Date: 20130420
  Transmission Date: 20140414
  Serious: Yes (Hospitalization)
  Sender: FDA-Public Use
  Company Number: US-B.I. PHARMACEUTICALS,INC./RIDGEFIELD-2012-BP-16085BP

PATIENT
  Sex: Male
  Weight: 102.06 kg

DRUGS (12)
  1. PRADAXA [Suspect]
     Indication: ATRIAL FIBRILLATION
     Dosage: 300 MG
     Route: 048
     Dates: start: 201012, end: 201112
  2. ALBUTEROL [Concomitant]
     Route: 055
  3. CLONAZEPAM [Concomitant]
     Dosage: 1 MG
  4. FORMOTEROL [Concomitant]
     Dosage: 12 MCG
     Route: 055
  5. LEVOTHYROXINE [Concomitant]
     Dosage: 0.125 MG
  6. MOMETASONE [Concomitant]
     Dosage: 440 MCG
     Route: 055
  7. OMEPRAZOLE 20 [Concomitant]
     Dosage: 40 MG
  8. SERTRALINE [Concomitant]
     Dosage: 100 MG
     Route: 048
  9. TERAZOSIN [Concomitant]
     Indication: BENIGN PROSTATIC HYPERPLASIA
     Dosage: 10 MG
  10. MULTAQ [Concomitant]
  11. LORAZEPAM [Concomitant]
     Route: 048
  12. MONTELUKAST [Concomitant]
     Dosage: 10 MG
     Route: 048

REACTIONS (2)
  - Haemorrhage [Unknown]
  - Gastrointestinal haemorrhage [Unknown]
